FAERS Safety Report 15831161 (Version 1)
Quarter: 2019Q1

REPORT INFORMATION
  Report Type: Spontaneous
  Country: PT (occurrence: PT)
  Receive Date: 20190116
  Receipt Date: 20190116
  Transmission Date: 20190417
  Serious: Yes (Hospitalization)
  Sender: FDA-Public Use
  Company Number: PT-ABBVIE-19S-130-2622268-00

PATIENT
  Age: 5 Month
  Sex: Male
  Weight: 6.2 kg

DRUGS (6)
  1. SYNAGIS [Suspect]
     Active Substance: PALIVIZUMAB
     Indication: PREMATURE BABY
  2. SYNAGIS [Suspect]
     Active Substance: PALIVIZUMAB
     Indication: BRONCHOPULMONARY DYSPLASIA
  3. IRON [Concomitant]
     Active Substance: IRON
     Indication: PREMATURE BABY
     Route: 048
  4. SYNAGIS [Suspect]
     Active Substance: PALIVIZUMAB
     Indication: ANTIVIRAL PROPHYLAXIS
     Dosage: 15 MG/KG
     Route: 030
     Dates: start: 20181023, end: 20181218
  5. MULTIVITAMIN VITAMIN D [Concomitant]
     Indication: PREMATURE BABY
     Route: 048
  6. URSODEOXYCHOLIC ACID [Concomitant]
     Active Substance: URSODIOL
     Indication: CHOLESTASIS
     Route: 048

REACTIONS (2)
  - Bronchitis [Recovering/Resolving]
  - Respiratory syncytial virus test positive [Recovering/Resolving]

NARRATIVE: CASE EVENT DATE: 20190104
